FAERS Safety Report 20921910 (Version 1)
Quarter: 2022Q2

REPORT INFORMATION
  Report Type: Spontaneous
  Country: US (occurrence: IT)
  Receive Date: 20220607
  Receipt Date: 20220607
  Transmission Date: 20220721
  Serious: Yes (Other)
  Sender: FDA-Public Use
  Company Number: US-PFIZER INC-2014105027

PATIENT
  Age: 68 Year
  Sex: Female

DRUGS (3)
  1. OXALIPLATIN [Suspect]
     Active Substance: OXALIPLATIN
     Indication: Colon cancer metastatic
     Dosage: UNK UNK, CYCLICAL
     Route: 065
     Dates: start: 2011
  2. LEUCOVORIN [Concomitant]
     Active Substance: LEUCOVORIN
     Indication: Colon cancer metastatic
     Dosage: UNK UNK, CYCLICAL
     Route: 065
     Dates: start: 2011
  3. FLUOROURACIL [Concomitant]
     Active Substance: FLUOROURACIL
     Indication: Colon cancer metastatic
     Dosage: UNK UNK, CYCLICAL
     Route: 065
     Dates: start: 2011

REACTIONS (1)
  - Thrombotic thrombocytopenic purpura [Recovering/Resolving]
